FAERS Safety Report 18948712 (Version 1)
Quarter: 2021Q1

REPORT INFORMATION
  Report Type: Spontaneous
  Country: US (occurrence: US)
  Receive Date: 20210226
  Receipt Date: 20210226
  Transmission Date: 20210420
  Serious: No
  Sender: FDA-Public Use
  Company Number: US-ROCHE-2523144

PATIENT
  Age: 68 Year
  Sex: Male
  Weight: 65.38 kg

DRUGS (4)
  1. OMEPRAZOLE. [Concomitant]
     Active Substance: OMEPRAZOLE
  2. SINGULAIR [Concomitant]
     Active Substance: MONTELUKAST SODIUM
  3. XOLAIR [Suspect]
     Active Substance: OMALIZUMAB
     Indication: ASTHMA
     Dosage: BENEATH THE SKIN, USUALLY VIA INJECTION. ONCE EVERY TWO WEEKS; TREATMENT DISCONTINUED.
     Route: 065
     Dates: start: 20190724, end: 20200109
  4. XOLAIR [Suspect]
     Active Substance: OMALIZUMAB
     Route: 065
     Dates: start: 20200109, end: 20200109

REACTIONS (3)
  - Bone pain [Recovered/Resolved]
  - Paraesthesia [Recovered/Resolved]
  - Phlebitis [Recovered/Resolved]

NARRATIVE: CASE EVENT DATE: 20200113
